FAERS Safety Report 10006470 (Version 1)
Quarter: 2014Q1

REPORT INFORMATION
  Report Type: Spontaneous
  Country: US (occurrence: US)
  Receive Date: 20140313
  Receipt Date: 20140313
  Transmission Date: 20141002
  Serious: Yes (Other)
  Sender: FDA-Public Use
  Company Number: US-ASTRAZENECA-2014SE16214

PATIENT
  Age: 34 Year
  Sex: Male
  Weight: 154.2 kg

DRUGS (5)
  1. NEXIUM [Suspect]
     Indication: GASTROOESOPHAGEAL REFLUX DISEASE
     Route: 048
     Dates: start: 20140303
  2. PRILOSEC [Suspect]
     Indication: GASTROOESOPHAGEAL REFLUX DISEASE
     Route: 048
  3. PRILOSEC OTC [Suspect]
     Indication: GASTROOESOPHAGEAL REFLUX DISEASE
     Route: 048
  4. PHENTERMINE [Concomitant]
     Indication: WEIGHT DECREASED
     Route: 048
     Dates: start: 20140301
  5. ADVIL [Concomitant]
     Indication: JOINT SWELLING
     Dosage: 800MG TO 1000 MG PRN
     Route: 048

REACTIONS (10)
  - Umbilical hernia [Unknown]
  - Tooth fracture [Unknown]
  - Gastrooesophageal reflux disease [Unknown]
  - Sleep apnoea syndrome [Unknown]
  - Oesophageal spasm [Unknown]
  - Folliculitis [Unknown]
  - Synovitis [Unknown]
  - Weight fluctuation [Unknown]
  - Regurgitation [Unknown]
  - Diarrhoea [Unknown]
